FAERS Safety Report 5482408-9 (Version None)
Quarter: 2007Q4

REPORT INFORMATION
  Report Type: 
  Country: None (occurrence: None)
  Receive Date: 20071011
  Receipt Date: 20071001
  Transmission Date: 20080405
  Serious: Yes (Life-Threatening)
  Sender: FDA-Public Use
  Company Number: B0490070B

PATIENT

DRUGS (4)
  1. AUGMENTIN '125' [Suspect]
     Dates: start: 20070905, end: 20070905
  2. SYNTOCINON [Concomitant]
     Dates: start: 20070905, end: 20070905
  3. VIRLIX [Concomitant]
  4. EPINEPHRINE [Concomitant]
     Dates: start: 20070905

REACTIONS (3)
  - BRADYCARDIA [None]
  - DRUG EXPOSURE DURING PREGNANCY [None]
  - FOETAL DISTRESS SYNDROME [None]
